FAERS Safety Report 7085119-1 (Version None)
Quarter: 2010Q4

REPORT INFORMATION
  Report Type: 
  Country: None (occurrence: None)
  Receive Date: 20101026
  Receipt Date: 20101019
  Transmission Date: 20110411
  Serious: Yes (Hospitalization, Disabling, Other)
  Sender: FDA-Public Use
  Company Number: 2010SP051444

PATIENT
  Age: 34 Year
  Sex: Female

DRUGS (3)
  1. SAPHRIS [Suspect]
     Indication: PRODUCT USED FOR UNKNOWN INDICATION
     Dosage: 5 MG; HS; SL
     Route: 060
     Dates: start: 20100922, end: 20100922
  2. ALCOHOL [Suspect]
     Indication: ALCOHOL ABUSE
  3. LAMICTAL [Concomitant]

REACTIONS (12)
  - ALCOHOLISM [None]
  - BIPOLAR DISORDER [None]
  - BORDERLINE PERSONALITY DISORDER [None]
  - DELUSION [None]
  - DEPRESSION [None]
  - GENERALISED ANXIETY DISORDER [None]
  - HALLUCINATION, VISUAL [None]
  - HYPOAESTHESIA [None]
  - INSOMNIA [None]
  - PSYCHOTIC DISORDER [None]
  - SOCIAL AVOIDANT BEHAVIOUR [None]
  - SUICIDAL IDEATION [None]
